FAERS Safety Report 12630081 (Version 3)
Quarter: 2023Q4

REPORT INFORMATION
  Report Type: Report from Study
  Country: US (occurrence: US)
  Receive Date: 20160808
  Receipt Date: 20231020
  Transmission Date: 20240109
  Serious: Yes (Death, Other)
  Sender: FDA-Public Use
  Company Number: US-PFIZER INC-2016368912

PATIENT
  Age: 85 Year
  Sex: Female

DRUGS (1)
  1. DOBUTAMINE HYDROCHLORIDE [Suspect]
     Active Substance: DOBUTAMINE HYDROCHLORIDE
     Indication: Cardiac stress test
     Dosage: 40 UG/KG/MIN IN DEXTROSE SOLUTION

REACTIONS (2)
  - Stress cardiomyopathy [Fatal]
  - Left ventricle outflow tract obstruction [Fatal]
